FAERS Safety Report 5518352-8 (Version None)
Quarter: 2007Q4

REPORT INFORMATION
  Report Type: 
  Country: None (occurrence: None)
  Receive Date: 20071115
  Receipt Date: 20071107
  Transmission Date: 20080405
  Serious: Yes (Hospitalization)
  Sender: FDA-Public Use
  Company Number: US-ROCHE-503440

PATIENT
  Age: 52 Year
  Sex: Female

DRUGS (4)
  1. PEGASYS [Suspect]
     Route: 065
     Dates: start: 20070511
  2. RIBAVIRIN [Suspect]
     Dosage: DOSAGE REPORTED AS 2 200 MG TABLETS IN THE MORNING AND 3 TABLETS IN THE EVENING.
     Route: 065
     Dates: start: 20070511
  3. PROMETHAZINE [Suspect]
     Indication: NAUSEA
     Route: 065
  4. UNSPECIFIED MEDICATION [Concomitant]
     Indication: PALPITATIONS

REACTIONS (4)
  - DRUG INTOLERANCE [None]
  - INSOMNIA [None]
  - NAUSEA [None]
  - PAIN [None]
